FAERS Safety Report 13233466 (Version 1)
Quarter: 2017Q1

REPORT INFORMATION
  Report Type: Spontaneous
  Country: CZ (occurrence: CZ)
  Receive Date: 20170215
  Receipt Date: 20170215
  Transmission Date: 20170428
  Serious: Yes (Hospitalization)
  Sender: FDA-Public Use
  Company Number: CZ-ROCHE-1893763

PATIENT
  Age: 71 Year
  Sex: Female

DRUGS (7)
  1. LODOZ [Concomitant]
     Active Substance: BISOPROLOL FUMARATE\HYDROCHLOROTHIAZIDE
     Dosage: 1-0-0
     Route: 065
  2. SORTIS [Concomitant]
     Active Substance: ATORVASTATIN
     Dosage: 0-0-1
     Route: 065
  3. ANOPYRIN [Concomitant]
     Active Substance: ASPIRIN
     Route: 065
  4. CALCICHEW D3 [Concomitant]
     Active Substance: CALCIUM\CHOLECALCIFEROL
     Dosage: 1-1-1
     Route: 065
  5. DETRALEX [Concomitant]
     Active Substance: DIOSMIN\HESPERIDIN
     Dosage: 1-0-1
     Route: 065
  6. EUTHYROX [Concomitant]
     Active Substance: LEVOTHYROXINE SODIUM
     Dosage: 1-0-0
     Route: 065
  7. BONVIVA [Suspect]
     Active Substance: IBANDRONATE SODIUM
     Indication: PRODUCT USED FOR UNKNOWN INDICATION
     Route: 065
     Dates: start: 20150204

REACTIONS (2)
  - Pain in extremity [Unknown]
  - Pathological fracture [Unknown]

NARRATIVE: CASE EVENT DATE: 201608
